FAERS Safety Report 5760532-0 (Version None)
Quarter: 2008Q2

REPORT INFORMATION
  Report Type: 
  Country: None (occurrence: None)
  Receive Date: 20080602
  Receipt Date: 20080519
  Transmission Date: 20081010
  Serious: Yes (Hospitalization)
  Sender: FDA-Public Use
  Company Number: 2008BI012973

PATIENT
  Sex: Female

DRUGS (1)
  1. AVONEX [Suspect]
     Indication: MULTIPLE SCLEROSIS
     Dosage: 3- UG; QW; IM
     Route: 030
     Dates: start: 20051029

REACTIONS (2)
  - ORAL INTAKE REDUCED [None]
  - WEIGHT DECREASED [None]
